FAERS Safety Report 19660755 (Version 1)
Quarter: 2021Q3

REPORT INFORMATION
  Report Type: Spontaneous
  Country: US (occurrence: US)
  Receive Date: 20210805
  Receipt Date: 20210805
  Transmission Date: 20211014
  Serious: No
  Sender: FDA-Public Use
  Company Number: None

PATIENT

DRUGS (2)
  1. HUMALOG [Suspect]
     Active Substance: INSULIN LISPRO
     Dosage: ?          OTHER STRENGTH:U?100;?
  2. HUMALOG [Suspect]
     Active Substance: INSULIN LISPRO
     Dosage: ?          OTHER STRENGTH:U?100;?

REACTIONS (3)
  - Device difficult to use [None]
  - Device dispensing error [None]
  - Device use confusion [None]
